FAERS Safety Report 14134396 (Version 1)
Quarter: 2017Q4

REPORT INFORMATION
  Report Type: Report from Study
  Country: BR (occurrence: BR)
  Receive Date: 20171027
  Receipt Date: 20171027
  Transmission Date: 20180321
  Serious: Yes (Death, Hospitalization)
  Sender: FDA-Public Use
  Company Number: BR-ROCHE-2013402

PATIENT
  Sex: Male

DRUGS (1)
  1. MABTHERA [Suspect]
     Active Substance: RITUXIMAB
     Indication: RHEUMATOID ARTHRITIS
     Route: 065
     Dates: start: 20170810, end: 20170828

REACTIONS (4)
  - Cardiac arrest [Fatal]
  - Lung infection [Not Recovered/Not Resolved]
  - Infection [Fatal]
  - Immunodeficiency [Not Recovered/Not Resolved]
